FAERS Safety Report 7473984-5 (Version None)
Quarter: 2011Q2

REPORT INFORMATION
  Report Type: 
  Country: None (occurrence: None)
  Receive Date: 20110511
  Receipt Date: 20110427
  Transmission Date: 20111010
  Serious: Yes (Death, Other)
  Sender: FDA-Public Use
  Company Number: US-BAYER-200922408NA

PATIENT
  Age: 64 Year
  Sex: Female

DRUGS (2)
  1. LOVENOX [Concomitant]
     Dosage: 60 MG, UNK
     Route: 058
     Dates: start: 20040922
  2. TRASYLOL [Suspect]
     Indication: PRODUCT USED FOR UNKNOWN INDICATION
     Dosage: UNK
     Route: 042
     Dates: start: 20041018

REACTIONS (13)
  - STRESS [None]
  - INJURY [None]
  - DEATH [None]
  - RENAL IMPAIRMENT [None]
  - RENAL INJURY [None]
  - RENAL FAILURE [None]
  - ANXIETY [None]
  - PAIN [None]
  - FEAR [None]
  - MULTI-ORGAN FAILURE [None]
  - EMOTIONAL DISTRESS [None]
  - UNEVALUABLE EVENT [None]
  - ANHEDONIA [None]
